FAERS Safety Report 5578694-7 (Version None)
Quarter: 2008Q1

REPORT INFORMATION
  Report Type: 
  Country: None (occurrence: None)
  Receive Date: 20080102
  Receipt Date: 20071220
  Transmission Date: 20080703
  Serious: Yes (Other)
  Sender: FDA-Public Use
  Company Number: AU-JNJFOC-20070506605

PATIENT
  Sex: Male
  Weight: 64 kg

DRUGS (6)
  1. TRAMADOL HYDROCHLORIDE ER [Suspect]
     Route: 048
  2. TRAMADOL HYDROCHLORIDE ER [Suspect]
     Indication: OSTEOARTHRITIS
     Route: 048
  3. MELOXICAM [Suspect]
     Route: 048
  4. MELOXICAM [Suspect]
     Indication: OSTEOARTHRITIS
     Route: 048
  5. PANAMAX [Concomitant]
     Route: 065
  6. PRESSIN [Concomitant]
     Route: 065

REACTIONS (1)
  - TRANSIENT ISCHAEMIC ATTACK [None]
